FAERS Safety Report 5571167-7 (Version None)
Quarter: 2007Q4

REPORT INFORMATION
  Report Type: 
  Country: None (occurrence: None)
  Receive Date: 20071221
  Receipt Date: 20061211
  Transmission Date: 20080405
  Serious: No
  Sender: FDA-Public Use
  Company Number: A0631162A

PATIENT
  Age: 68 Year
  Sex: Female

DRUGS (8)
  1. FLUTICASONE PROPIONATE [Suspect]
     Indication: MULTIPLE ALLERGIES
     Dosage: 1SPR TWICE PER DAY
     Route: 045
     Dates: start: 20060101
  2. ADVAIR DISKUS 100/50 [Concomitant]
  3. ATIVAN [Concomitant]
  4. METHOCARBAMOL [Concomitant]
  5. LOTREL [Concomitant]
  6. SERTRALINE [Concomitant]
  7. ADDERALL 10 [Concomitant]
  8. MIRTAZAPINE [Concomitant]

REACTIONS (2)
  - DRUG INEFFECTIVE [None]
  - WHEEZING [None]
